FAERS Safety Report 7777661-2 (Version None)
Quarter: 2011Q3

REPORT INFORMATION
  Report Type: 
  Country: None (occurrence: None)
  Receive Date: 20110922
  Receipt Date: 20110912
  Transmission Date: 20111222
  Serious: Yes (Other)
  Sender: FDA-Public Use
  Company Number: US-2011-10335

PATIENT
  Age: 75 Year

DRUGS (1)
  1. SAMSCA (TOLVAPATAN) TABLET [Suspect]
     Indication: HYPONATRAEMIA
     Dosage: 15 MG MILLIGRAM(S), SINGLE, ORAL
     Route: 048
     Dates: start: 20110505, end: 20110505

REACTIONS (4)
  - PARAESTHESIA [None]
  - DYSARTHRIA [None]
  - POLYURIA [None]
  - RAPID CORRECTION OF HYPONATRAEMIA [None]
